FAERS Safety Report 15053305 (Version 1)
Quarter: 2018Q2

REPORT INFORMATION
  Report Type: Spontaneous
  Country: GB (occurrence: GB)
  Receive Date: 20180622
  Receipt Date: 20180622
  Transmission Date: 20180711
  Serious: Yes (Hospitalization)
  Sender: FDA-Public Use
  Company Number: GB-TEVA-2018-GB-913109

PATIENT
  Age: 77 Year
  Sex: Female

DRUGS (18)
  1. TIMOLOL. [Concomitant]
     Active Substance: TIMOLOL
     Route: 050
  2. SPIRONOLACTONE. [Suspect]
     Active Substance: SPIRONOLACTONE
     Dosage: 25 MILLIGRAM DAILY; IN THE MORNING.
     Route: 048
     Dates: end: 20180504
  3. ALLOPURINOL. [Concomitant]
     Active Substance: ALLOPURINOL
  4. AIROMIR [Concomitant]
     Active Substance: ALBUTEROL SULFATE
  5. COCODAMOL [Concomitant]
     Active Substance: ACETAMINOPHEN\CODEINE PHOSPHATE
     Dosage: 8MG/500MG
  6. DOCUSATE [Concomitant]
     Active Substance: DOCUSATE
  7. LANSOPRAZOLE. [Concomitant]
     Active Substance: LANSOPRAZOLE
  8. GABAPENTIN. [Concomitant]
     Active Substance: GABAPENTIN
  9. LACTULOSE. [Concomitant]
     Active Substance: LACTULOSE
     Dosage: 3.1-3.7G/5ML
     Route: 048
  10. DILTIAZEM. [Concomitant]
     Active Substance: DILTIAZEM
  11. CLOTRIMAZOLE. [Concomitant]
     Active Substance: CLOTRIMAZOLE
  12. QVAR [Concomitant]
     Active Substance: BECLOMETHASONE DIPROPIONATE
  13. NITROMIN [Concomitant]
  14. BUMETANIDE. [Suspect]
     Active Substance: BUMETANIDE
     Dosage: .5 MILLIGRAM DAILY; IN THE MORNING.
     Route: 048
     Dates: end: 20180504
  15. CASSIA [Concomitant]
  16. SIMVASTATIN. [Concomitant]
     Active Substance: SIMVASTATIN
  17. DICLOFENAC [Concomitant]
     Active Substance: DICLOFENAC
  18. AMITRIPTYLINE [Concomitant]
     Active Substance: AMITRIPTYLINE

REACTIONS (3)
  - Dehydration [Unknown]
  - Syncope [Unknown]
  - Orthostatic hypotension [Recovered/Resolved]
